FAERS Safety Report 12460304 (Version 2)
Quarter: 2016Q3

REPORT INFORMATION
  Report Type: Spontaneous
  Country: GB (occurrence: GB)
  Receive Date: 20160613
  Receipt Date: 20160705
  Transmission Date: 20161109
  Serious: Yes (Hospitalization, Other)
  Sender: FDA-Public Use
  Company Number: GB-JNJFOC-20160508606

PATIENT
  Sex: Male

DRUGS (1)
  1. SIMPONI [Suspect]
     Active Substance: GOLIMUMAB
     Indication: PRODUCT USED FOR UNKNOWN INDICATION
     Route: 058

REACTIONS (7)
  - Pyrexia [Unknown]
  - Cough [Unknown]
  - Arthralgia [Unknown]
  - Viral infection [Not Recovered/Not Resolved]
  - Malaise [Unknown]
  - Oropharyngeal pain [Unknown]
  - Rash erythematous [Not Recovered/Not Resolved]
